FAERS Safety Report 14718243 (Version 1)
Quarter: 2018Q2

REPORT INFORMATION
  Report Type: Spontaneous
  Country: US (occurrence: US)
  Receive Date: 20180404
  Receipt Date: 20180404
  Transmission Date: 20180711
  Serious: No
  Sender: FDA-Public Use
  Company Number: US-SA-2018SA070641

PATIENT
  Age: 16 Year
  Sex: Male

DRUGS (8)
  1. BENADRYL [Concomitant]
     Active Substance: DIPHENHYDRAMINE HYDROCHLORIDE
     Dosage: CREAM 0.1%
     Route: 065
     Dates: start: 20170815, end: 20170920
  2. IBUPROFEN. [Concomitant]
     Active Substance: IBUPROFEN
     Route: 065
     Dates: start: 20170815
  3. CLARITIN [Concomitant]
     Active Substance: LORATADINE
     Route: 065
     Dates: start: 20170815
  4. DUPIXENT [Suspect]
     Active Substance: DUPILUMAB
     Indication: DERMATITIS ATOPIC
     Route: 058
     Dates: start: 20171103
  5. TRIAMCINOLONE [Concomitant]
     Active Substance: TRIAMCINOLONE
     Dosage: CREAM 0.1%
     Route: 065
     Dates: start: 20170815, end: 20170920
  6. PANTHENOL/RETINOL/THIAMINE HYDROCHLORIDE/ASCORBIC ACID/ERGOCALCIFEROL/FOLIC ACID/RIBOFLAVIN/NICOTINA [Concomitant]
     Route: 065
     Dates: start: 20170920
  7. DUPIXENT [Suspect]
     Active Substance: DUPILUMAB
     Indication: DERMATITIS ATOPIC
     Route: 058
     Dates: start: 201710
  8. PROTOPIC [Concomitant]
     Active Substance: TACROLIMUS
     Dosage: OINTMENT 0.3%
     Route: 065
     Dates: start: 20170815, end: 20170920

REACTIONS (2)
  - Therapeutic response decreased [Unknown]
  - Product use issue [Unknown]

NARRATIVE: CASE EVENT DATE: 201710
